FAERS Safety Report 16752489 (Version 4)
Quarter: 2019Q3

REPORT INFORMATION
  Report Type: Spontaneous
  Country: AT (occurrence: AT)
  Receive Date: 20190828
  Receipt Date: 20190930
  Transmission Date: 20191005
  Serious: Yes (Death, Life-Threatening, Hospitalization, Other)
  Sender: FDA-Public Use
  Company Number: AT-PFIZER INC-2019369407

PATIENT
  Age: 65 Year
  Sex: Male

DRUGS (7)
  1. KEYTRUDA [Suspect]
     Active Substance: PEMBROLIZUMAB
     Indication: NON-SMALL CELL LUNG CANCER
     Dosage: 180 MG, UNK (2 TIMES)
     Dates: start: 20190627
  2. KEYTRUDA [Suspect]
     Active Substance: PEMBROLIZUMAB
     Dosage: 180 MG, TWICE DAILY
     Dates: start: 20190802
  3. PEMETREXED. [Suspect]
     Active Substance: PEMETREXED
     Indication: SQUAMOUS CELL CARCINOMA OF LUNG
     Dosage: UNK
  4. CARBOPLATIN. [Suspect]
     Active Substance: CARBOPLATIN
     Dosage: 330 MG, UNK
     Dates: start: 20190802
  5. ABRAXANE [Suspect]
     Active Substance: PACLITAXEL
     Indication: NON-SMALL CELL LUNG CANCER
     Dosage: 200 MG, UNK
     Dates: start: 20190627
  6. ABRAXANE [Suspect]
     Active Substance: PACLITAXEL
     Dosage: 20 MG, UNK
     Dates: start: 20190802
  7. CARBOPLATIN. [Suspect]
     Active Substance: CARBOPLATIN
     Indication: NON-SMALL CELL LUNG CANCER
     Dosage: 330 MG, UNK
     Dates: start: 20190627

REACTIONS (6)
  - Lip disorder [Unknown]
  - Chapped lips [Unknown]
  - Rash [Unknown]
  - Toxic epidermal necrolysis [Unknown]
  - Cheilitis [Unknown]
  - Staphylococcal infection [Fatal]

NARRATIVE: CASE EVENT DATE: 2019
